FAERS Safety Report 5463543-8 (Version None)
Quarter: 2007Q3

REPORT INFORMATION
  Report Type: 
  Country: None (occurrence: None)
  Receive Date: 20070920
  Receipt Date: 20070911
  Transmission Date: 20080115
  Serious: Yes (Other)
  Sender: FDA-Public Use
  Company Number: GB-PFIZER INC-2007076077

PATIENT
  Age: 67 Year
  Sex: Female
  Weight: 77 kg

DRUGS (14)
  1. CHAMPIX [Suspect]
     Indication: SMOKING CESSATION THERAPY
     Route: 048
     Dates: start: 20070719, end: 20070901
  2. ATORVASTATIN CALCIUM [Concomitant]
  3. ASPIRIN [Concomitant]
  4. FELODIPINE [Concomitant]
  5. GLYCERYL TRINITRATE [Concomitant]
  6. IBUPROFEN [Concomitant]
  7. ISPAGHULA HUSK [Concomitant]
  8. KOLANTICON [Concomitant]
  9. LANSOPRAZOLE [Concomitant]
  10. MEBEVERINE [Concomitant]
  11. NICOTINE [Concomitant]
  12. OXPRENOLOL HYDROCHLORIDE [Concomitant]
  13. PERINDOPRIL ERBUMINE [Concomitant]
  14. TAMOXIFEN CITRATE [Concomitant]

REACTIONS (4)
  - DEPRESSION [None]
  - DISTURBANCE IN ATTENTION [None]
  - NIGHTMARE [None]
  - TEARFULNESS [None]
